FAERS Safety Report 24842258 (Version 1)
Quarter: 2025Q1

REPORT INFORMATION
  Report Type: Spontaneous
  Country: US (occurrence: US)
  Receive Date: 20250115
  Receipt Date: 20250115
  Transmission Date: 20250409
  Serious: No
  Sender: SANOFI AVENTIS
  Company Number: US-SA-2025SA011080

PATIENT
  Age: 59 Year
  Sex: Female

DRUGS (19)
  1. DUPIXENT [Suspect]
     Active Substance: DUPILUMAB
     Indication: Dermatitis atopic
     Dosage: 300 MG, QOW
     Route: 058
     Dates: start: 20220928
  2. ARMOUR THYROID [Concomitant]
     Active Substance: THYROID, PORCINE
  3. CIBINQO [Concomitant]
     Active Substance: ABROCITINIB
  4. CLOBETASOL [Concomitant]
     Active Substance: CLOBETASOL
  5. CLONAZEPAM [Concomitant]
     Active Substance: CLONAZEPAM
  6. ESZOPICLONE [Concomitant]
     Active Substance: ESZOPICLONE
  7. FLUOCINOLONE ACETONIDE [Concomitant]
     Active Substance: FLUOCINOLONE ACETONIDE
  8. GABAPENTIN [Concomitant]
     Active Substance: GABAPENTIN
  9. HYDROXYZINE HYDROCHLORIDE [Concomitant]
     Active Substance: HYDROXYZINE HYDROCHLORIDE
  10. LIOTHYRONINE SODIUM [Concomitant]
     Active Substance: LIOTHYRONINE SODIUM
  11. NP THYROID [Concomitant]
     Active Substance: LEVOTHYROXINE\LIOTHYRONINE
  12. ONDANSETRON [Concomitant]
     Active Substance: ONDANSETRON
  13. PREDNISONE [Concomitant]
     Active Substance: PREDNISONE
  14. PROGESTERONE [Concomitant]
     Active Substance: PROGESTERONE
  15. PROGESTERONE [Concomitant]
     Active Substance: PROGESTERONE
  16. SULFAMETHOXAZOLE\TRIMETHOPRIM [Concomitant]
     Active Substance: SULFAMETHOXAZOLE\TRIMETHOPRIM
  17. TIROSINT [Concomitant]
     Active Substance: LEVOTHYROXINE SODIUM
  18. ARMOUR THYROID [Concomitant]
     Active Substance: THYROID, PORCINE
  19. ARMOUR THYROID [Concomitant]
     Active Substance: THYROID, PORCINE

REACTIONS (2)
  - Sleep disorder due to a general medical condition [Unknown]
  - Drug ineffective [Unknown]
